FAERS Safety Report 20477741 (Version 2)
Quarter: 2022Q2

REPORT INFORMATION
  Report Type: Spontaneous
  Country: US (occurrence: US)
  Receive Date: 20220216
  Receipt Date: 20220428
  Transmission Date: 20220721
  Serious: Yes (Hospitalization)
  Sender: FDA-Public Use
  Company Number: US-NOVOPROD-890439

PATIENT
  Age: 66 Year
  Sex: Female

DRUGS (11)
  1. OZEMPIC [Suspect]
     Active Substance: SEMAGLUTIDE
     Indication: Product used for unknown indication
     Dosage: PRESCRIBED 5 CLICKS, THEN INCREASE TO 10 CLICKS AS TOLERATED
     Route: 058
     Dates: start: 202111
  2. BUTALBITAL, ACETAMINOPHEN, AND CAFFEINE [Concomitant]
     Active Substance: ACETAMINOPHEN\BUTALBITAL\CAFFEINE
     Indication: Headache
     Dosage: 325-40 MG PER CAPSULE, 1 CAPSULE BY MOUTH Q6H PRN
     Route: 048
  3. CALCIUM CARBONATE [Concomitant]
     Active Substance: CALCIUM CARBONATE
     Indication: Product used for unknown indication
     Dosage: 600 MG, QD
     Route: 048
  4. CHOLECALCIFEROL [Concomitant]
     Active Substance: CHOLECALCIFEROL
     Indication: Product used for unknown indication
     Dosage: 4000 IU, QD
     Route: 048
  5. NEXIUM I.V. [Concomitant]
     Active Substance: ESOMEPRAZOLE SODIUM
     Indication: Product used for unknown indication
     Dosage: 40 MG, QD
     Route: 048
  6. SYNTHROID [Concomitant]
     Active Substance: LEVOTHYROXINE SODIUM
     Indication: Product used for unknown indication
     Dosage: 50 ?G, QD
     Route: 048
  7. CLARITIN [Concomitant]
     Active Substance: LORATADINE
     Indication: Product used for unknown indication
     Dosage: 10 MG, QD
     Route: 048
  8. GLUCOPHAGE [Concomitant]
     Active Substance: METFORMIN HYDROCHLORIDE
     Indication: Product used for unknown indication
     Dosage: 2000 MG, QD
     Route: 048
  9. WOMENS MULTI ONE A DAY [Concomitant]
     Indication: Product used for unknown indication
     Dosage: 1 TABLET QD
     Route: 048
  10. BYSTOLIC [Concomitant]
     Active Substance: NEBIVOLOL HYDROCHLORIDE
     Indication: Product used for unknown indication
     Dosage: 2.5 MG, QD
     Route: 048
  11. BENICAR [Concomitant]
     Active Substance: OLMESARTAN MEDOXOMIL
     Indication: Product used for unknown indication
     Dosage: 5 MG, QD
     Route: 048

REACTIONS (4)
  - Ejection fraction decreased [Recovered/Resolved]
  - Blood glucose increased [Unknown]
  - Product communication issue [Unknown]
  - Product prescribing error [Unknown]

NARRATIVE: CASE EVENT DATE: 20211101
